FAERS Safety Report 17240312 (Version 2)
Quarter: 2020Q1

REPORT INFORMATION
  Report Type: Spontaneous
  Country: US (occurrence: US)
  Receive Date: 20200107
  Receipt Date: 20200116
  Transmission Date: 20200409
  Serious: Yes (Hospitalization)
  Sender: FDA-Public Use
  Company Number: US-ROCHE-2516157

PATIENT
  Sex: Male

DRUGS (1)
  1. ESBRIET [Suspect]
     Active Substance: PIRFENIDONE
     Indication: IDIOPATHIC PULMONARY FIBROSIS
     Dosage: ONE TABLET THRICE IN A DAY FOR A WEEK THEN TWO TABLETS THRICE IN A DAY FOR NEXT ONE WEEK AND THREE T
     Route: 048

REACTIONS (2)
  - Dyspnoea [Recovered/Resolved]
  - Nasopharyngitis [Unknown]
